FAERS Safety Report 20307087 (Version 3)
Quarter: 2022Q1

REPORT INFORMATION
  Report Type: Report from Study
  Country: US (occurrence: US)
  Receive Date: 20220107
  Receipt Date: 20220324
  Transmission Date: 20220423
  Serious: Yes (Hospitalization, Other)
  Sender: FDA-Public Use
  Company Number: US-ABBVIE-22K-163-4220937-00

PATIENT
  Age: 70 Year
  Sex: Female
  Weight: 69 kg

DRUGS (21)
  1. VENCLEXTA [Suspect]
     Active Substance: VENETOCLAX
     Indication: Acute myeloid leukaemia
     Dosage: BY MOUTH DAILY WITH FOOD AND FULL GLASS OF WATER
     Route: 048
     Dates: end: 202112
  2. VENCLEXTA [Suspect]
     Active Substance: VENETOCLAX
     Dosage: TAKE WITH FOOD SAME TIME EACH DAY. AVOID GRAPEFRUIT AND GRAPEFRUIT JUICE.
     Route: 048
     Dates: start: 20220201
  3. DECADRON [Concomitant]
     Active Substance: DEXAMETHASONE
     Indication: Product used for unknown indication
     Dosage: FOR 5 DAYS
     Route: 048
  4. DECADRON [Concomitant]
     Active Substance: DEXAMETHASONE
     Dosage: FOR 5 DAYS
     Route: 048
  5. FLORINEF ACETATE [Concomitant]
     Active Substance: FLUDROCORTISONE ACETATE
     Indication: Product used for unknown indication
     Route: 048
  6. NEURONTIN [Concomitant]
     Active Substance: GABAPENTIN
     Indication: Product used for unknown indication
     Route: 048
  7. CELEXA [Concomitant]
     Active Substance: CITALOPRAM HYDROBROMIDE
     Indication: Product used for unknown indication
     Route: 048
  8. VITAMIN B12 [Concomitant]
     Active Substance: CYANOCOBALAMIN
     Indication: Product used for unknown indication
     Route: 048
  9. KLONOPIN [Concomitant]
     Active Substance: CLONAZEPAM
     Indication: Product used for unknown indication
     Dosage: 0.5 MG BY MOUTH NIGHTLY
     Route: 048
  10. FLAXSEED [Concomitant]
     Active Substance: FLAX SEED
     Indication: Product used for unknown indication
     Route: 048
  11. MOTRIN [Concomitant]
     Active Substance: IBUPROFEN
     Indication: Pain
     Dosage: BY MOUTH EVERY SIX HOURS AS NEEDED FOR PAIN
     Route: 048
  12. SYNTHROID [Concomitant]
     Active Substance: LEVOTHYROXINE SODIUM
     Indication: Product used for unknown indication
     Route: 048
  13. RISPERDAL [Concomitant]
     Active Substance: RISPERIDONE
     Indication: Product used for unknown indication
     Route: 048
  14. TOPAMAX [Concomitant]
     Active Substance: TOPIRAMATE
     Indication: Product used for unknown indication
     Dosage: 200 MG BY MOUTH NIGHTLY
     Route: 048
  15. BIOTIN [Concomitant]
     Active Substance: BIOTIN
     Indication: Product used for unknown indication
     Route: 048
  16. CALCIUM [Concomitant]
     Active Substance: CALCIUM
     Indication: Product used for unknown indication
     Route: 048
  17. VITAMIN D3 [Concomitant]
     Active Substance: CHOLECALCIFEROL
     Indication: Product used for unknown indication
     Route: 048
  18. VITAMIN K [Concomitant]
     Active Substance: PHYTONADIONE
     Indication: Product used for unknown indication
     Route: 048
  19. ADVIL [Concomitant]
     Active Substance: IBUPROFEN
     Indication: Product used for unknown indication
  20. CLONAZEPAM [Concomitant]
     Active Substance: CLONAZEPAM
     Indication: Product used for unknown indication
  21. FLEXERIL [Concomitant]
     Active Substance: CYCLOBENZAPRINE HYDROCHLORIDE
     Indication: Product used for unknown indication

REACTIONS (21)
  - COVID-19 [Recovered/Resolved]
  - Large granular lymphocytosis [Unknown]
  - Immunodeficiency [Recovering/Resolving]
  - Bipolar disorder [Unknown]
  - Hypothyroidism [Unknown]
  - Adrenal insufficiency [Unknown]
  - Transaminases increased [Unknown]
  - Atrial fibrillation [Unknown]
  - Urinary retention [Unknown]
  - Decubitus ulcer [Unknown]
  - Pleural effusion [Recovered/Resolved]
  - Neck pain [Unknown]
  - Hypokalaemia [Unknown]
  - Arthralgia [Unknown]
  - Depression [Unknown]
  - Epiglottitis [Recovered/Resolved]
  - Affective disorder [Unknown]
  - Adjustment disorder [Unknown]
  - Constipation [Unknown]
  - Generalised oedema [Unknown]
  - Anaemia [Unknown]

NARRATIVE: CASE EVENT DATE: 20211229
